FAERS Safety Report 9275898 (Version 1)
Quarter: 2013Q2

REPORT INFORMATION
  Report Type: Spontaneous
  Country: US (occurrence: None)
  Receive Date: 20130502
  Receipt Date: 20130502
  Transmission Date: 20140414
  Serious: No
  Sender: FDA-Public Use
  Company Number: None

PATIENT
  Age: 6 Year
  Sex: Female
  Weight: 28 kg

DRUGS (1)
  1. LUPRON [Suspect]
     Indication: PRECOCIOUS PUBERTY

REACTIONS (2)
  - Abscess limb [None]
  - Injection site abscess [None]
